FAERS Safety Report 7966302-7 (Version None)
Quarter: 2011Q4

REPORT INFORMATION
  Report Type: 
  Country: None (occurrence: None)
  Receive Date: 20111208
  Receipt Date: 20111130
  Transmission Date: 20120403
  Serious: Yes (Hospitalization)
  Sender: FDA-Public Use
  Company Number: US-ASTRAZENECA-2011SE44073

PATIENT
  Age: 47 Year
  Sex: Male
  Weight: 158.8 kg

DRUGS (7)
  1. SEROQUEL [Suspect]
     Route: 048
  2. SEROQUEL [Suspect]
     Route: 048
  3. SEROQUEL [Suspect]
     Indication: DEPRESSION
     Route: 048
     Dates: start: 20110201
  4. SEROQUEL [Suspect]
     Indication: SLEEP DISORDER
     Route: 048
     Dates: start: 20110201
  5. SEROQUEL [Suspect]
     Route: 048
  6. PAXIL [Concomitant]
  7. SEROQUEL [Suspect]
     Indication: ANXIETY
     Route: 048
     Dates: start: 20110201

REACTIONS (6)
  - MIDDLE INSOMNIA [None]
  - ABNORMAL DREAMS [None]
  - DRUG DOSE OMISSION [None]
  - OFF LABEL USE [None]
  - MENTAL DISORDER [None]
  - INSOMNIA [None]
